FAERS Safety Report 13810419 (Version 3)
Quarter: 2017Q4

REPORT INFORMATION
  Report Type: Report from Study
  Country: US (occurrence: US)
  Receive Date: 20170728
  Receipt Date: 20171101
  Transmission Date: 20180320
  Serious: Yes (Hospitalization)
  Sender: FDA-Public Use
  Company Number: US-TESARO, INC.-US-2016TSO00355

PATIENT
  Age: 33 Year
  Sex: Male

DRUGS (5)
  1. IRINOTECAN [Suspect]
     Active Substance: IRINOTECAN
     Indication: CHEMOTHERAPY
     Dosage: 25 MG/M2 DAYS 2-6
     Route: 042
     Dates: start: 20161207, end: 20161211
  2. CEFUROXIME. [Concomitant]
     Active Substance: CEFUROXIME
     Indication: PRODUCT USED FOR UNKNOWN INDICATION
     Dosage: 250 MG, Q 12 HOURS
     Dates: start: 20161205
  3. ONDANSETRON [Concomitant]
     Active Substance: ONDANSETRON
     Indication: PRODUCT USED FOR UNKNOWN INDICATION
     Dosage: 8 MG, PRN
     Dates: start: 20161207
  4. NIRAPARIB [Suspect]
     Active Substance: NIRAPARIB
     Indication: CHEMOTHERAPY
     Dosage: 100 MG DAYS 1-7
     Route: 048
     Dates: start: 20161206, end: 20161212
  5. LOPERAMIDE [Concomitant]
     Active Substance: LOPERAMIDE
     Indication: PRODUCT USED FOR UNKNOWN INDICATION
     Dosage: 2 MG, PRN
     Dates: start: 20161214

REACTIONS (1)
  - Enterocolitis infectious [Recovered/Resolved]

NARRATIVE: CASE EVENT DATE: 20161217
